FAERS Safety Report 7628506-2 (Version None)
Quarter: 2011Q3

REPORT INFORMATION
  Report Type: 
  Country: None (occurrence: None)
  Receive Date: 20110722
  Receipt Date: 20110718
  Transmission Date: 20111222
  Serious: Yes (Death, Other)
  Sender: FDA-Public Use
  Company Number: US-ELI_LILLY_AND_COMPANY-US201107004819

PATIENT
  Sex: Male

DRUGS (3)
  1. EFFIENT [Suspect]
     Dosage: 10 MG, QD, PRESCRIBED, UNKNOWN IF TAKEN
  2. EFFIENT [Suspect]
     Indication: ACUTE CORONARY SYNDROME
     Dosage: 60 MG, LOADING DOSE
  3. HEPARIN [Concomitant]

REACTIONS (2)
  - NEOPLASM MALIGNANT [None]
  - PULMONARY EMBOLISM [None]
